FAERS Safety Report 24645131 (Version 4)
Quarter: 2024Q4

REPORT INFORMATION
  Report Type: Spontaneous
  Country: US (occurrence: US)
  Receive Date: 20241121
  Receipt Date: 20241212
  Transmission Date: 20250114
  Serious: Yes (Other)
  Sender: ROCHE
  Company Number: US-ROCHE-10000135696

PATIENT
  Age: 51 Year
  Sex: Male

DRUGS (5)
  1. VABYSMO [Suspect]
     Active Substance: FARICIMAB-SVOA
     Indication: Diabetic retinal oedema
     Dosage: DOSE: 6 MG/0.05 ML??OD: RIGHT EYE
     Route: 065
     Dates: start: 20240924
  2. VABYSMO [Suspect]
     Active Substance: FARICIMAB-SVOA
     Dosage: DOSE: 6 MG/0.05 ML??RECEIVED SECOND INJECTION IN OS: LEFT EYE ON 05-NOV-2024
     Route: 065
     Dates: start: 20240910
  3. VABYSMO [Suspect]
     Active Substance: FARICIMAB-SVOA
     Dosage: DOSE: 6 MG/0.05 ML
     Route: 065
  4. VABYSMO [Suspect]
     Active Substance: FARICIMAB-SVOA
     Dosage: DOSE: 6 MG/0.05 ML
     Route: 065
  5. LUCENTIS [Suspect]
     Active Substance: RANIBIZUMAB
     Indication: Diabetic retinal oedema
     Route: 065
     Dates: start: 20231011, end: 20240723

REACTIONS (5)
  - Intraocular pressure increased [Not Recovered/Not Resolved]
  - Drug ineffective [Unknown]
  - Iridocyclitis [Not Recovered/Not Resolved]
  - Vitritis [Not Recovered/Not Resolved]
  - Retinal occlusive vasculitis [Not Recovered/Not Resolved]

NARRATIVE: CASE EVENT DATE: 20241105
